FAERS Safety Report 5819091-6 (Version None)
Quarter: 2008Q3

REPORT INFORMATION
  Report Type: 
  Country: None (occurrence: None)
  Receive Date: 20080721
  Receipt Date: 20080721
  Transmission Date: 20090109
  Serious: Yes (Other)
  Sender: FDA-Public Use
  Company Number: None

PATIENT
  Age: 75 Year
  Sex: Female

DRUGS (6)
  1. VENOFER [Suspect]
     Indication: IRON DEFICIENCY ANAEMIA
     Dosage: 200MG/WK INTRAVENOUS
     Route: 042
     Dates: start: 20080222, end: 20080415
  2. VENOFER [Suspect]
     Indication: RENAL DISORDER
     Dosage: 200MG/WK INTRAVENOUS
     Route: 042
     Dates: start: 20080222, end: 20080415
  3. EPO (ERYTHROPOETIN) [Concomitant]
  4. FUROSEMIDE [Concomitant]
  5. ASASANTIN RETARD (DIPYRIDAMOLE, ACETYLSALICYLIC ACID) [Concomitant]
  6. RAMIPRIL [Concomitant]

REACTIONS (6)
  - ECZEMA [None]
  - ERYTHEMA [None]
  - SKIN EXFOLIATION [None]
  - SKIN FISSURES [None]
  - SKIN REACTION [None]
  - SKIN SWELLING [None]
